FAERS Safety Report 14829761 (Version 1)
Quarter: 2018Q2

REPORT INFORMATION
  Report Type: Spontaneous
  Country: FR (occurrence: FR)
  Receive Date: 20180430
  Receipt Date: 20180430
  Transmission Date: 20180711
  Serious: Yes (Other)
  Sender: FDA-Public Use
  Company Number: FR-ROCHE-2114719

PATIENT
  Age: 80 Year
  Sex: Female

DRUGS (3)
  1. PEGASYS [Suspect]
     Active Substance: PEGINTERFERON ALFA-2A
     Indication: MYELOPROLIFERATIVE NEOPLASM
     Route: 065
  2. PEGASYS [Suspect]
     Active Substance: PEGINTERFERON ALFA-2A
     Indication: THROMBOCYTOSIS
  3. PEGASYS [Suspect]
     Active Substance: PEGINTERFERON ALFA-2A
     Indication: POLYCYTHAEMIA

REACTIONS (4)
  - Off label use [Unknown]
  - Intentional product use issue [Unknown]
  - Alveolitis [Not Recovered/Not Resolved]
  - Interstitial lung disease [Not Recovered/Not Resolved]
